FAERS Safety Report 22024446 (Version 1)
Quarter: 2023Q1

REPORT INFORMATION
  Report Type: Spontaneous
  Country: US (occurrence: None)
  Receive Date: 20230223
  Receipt Date: 20230223
  Transmission Date: 20230418
  Serious: No
  Sender: FDA-Public Use
  Company Number: US-ROCHE-3029669

PATIENT
  Sex: Female

DRUGS (4)
  1. XOLAIR [Suspect]
     Active Substance: OMALIZUMAB
     Indication: Product used for unknown indication
     Route: 065
  2. HISTAMINE [Concomitant]
     Active Substance: HISTAMINE
     Dosage: DAILY
  3. PREDNISONE [Concomitant]
     Active Substance: PREDNISONE
  4. ADALIMUMAB [Concomitant]
     Active Substance: ADALIMUMAB

REACTIONS (3)
  - Bite [Unknown]
  - Swelling [Unknown]
  - Pruritus [Unknown]
